FAERS Safety Report 4287966-8 (Version None)
Quarter: 2004Q1

REPORT INFORMATION
  Report Type: 
  Country: None (occurrence: None)
  Receive Date: 20040209
  Receipt Date: 20031107
  Transmission Date: 20041129
  Serious: No
  Sender: FDA-Public Use
  Company Number: US-GLAXOSMITHKLINE-A0438832A

PATIENT
  Age: 57 Year
  Sex: Female

DRUGS (4)
  1. PAXIL [Suspect]
     Dosage: 25MG PER DAY
     Route: 048
  2. HYZAAR [Concomitant]
  3. ESTRATEST [Concomitant]
  4. PROVERA [Concomitant]

REACTIONS (3)
  - DIZZINESS [None]
  - PARAESTHESIA [None]
  - WEIGHT INCREASED [None]
